FAERS Safety Report 7513597-X (Version None)
Quarter: 2011Q2

REPORT INFORMATION
  Report Type: 
  Country: None (occurrence: None)
  Receive Date: 20110531
  Receipt Date: 20110519
  Transmission Date: 20111010
  Serious: Yes (Hospitalization, Other)
  Sender: FDA-Public Use
  Company Number: US-ASTRAZENECA-2011SE31236

PATIENT
  Age: 49 Year
  Sex: Female

DRUGS (1)
  1. SEROQUEL [Suspect]
     Indication: TACHYPHRENIA
     Dosage: 25 MG 1 T 2 TABLETS AT NIGHT
     Route: 048

REACTIONS (5)
  - LIMB OPERATION [None]
  - DRUG DOSE OMISSION [None]
  - SURGERY [None]
  - INSOMNIA [None]
  - OFF LABEL USE [None]
